FAERS Safety Report 8137073-9 (Version None)
Quarter: 2012Q1

REPORT INFORMATION
  Report Type: 
  Country: None (occurrence: None)
  Receive Date: 20120215
  Receipt Date: 20120206
  Transmission Date: 20120608
  Serious: No
  Sender: FDA-Public Use
  Company Number: US-BIOGENIDEC-2012BI004778

PATIENT
  Age: 54 Year
  Sex: Female

DRUGS (2)
  1. TYSABRI [Suspect]
     Indication: MULTIPLE SCLEROSIS
     Route: 042
     Dates: start: 20070315, end: 20100901
  2. TYSABRI [Suspect]
     Route: 042
     Dates: start: 20110620

REACTIONS (2)
  - EMOTIONAL DISTRESS [None]
  - MENTAL IMPAIRMENT [None]
